FAERS Safety Report 5049238-3 (Version None)
Quarter: 2006Q3

REPORT INFORMATION
  Report Type: 
  Country: None (occurrence: None)
  Receive Date: 20060707
  Receipt Date: 20060626
  Transmission Date: 20061208
  Serious: No
  Sender: FDA-Public Use
  Company Number: 06H-163-0308550-00

PATIENT
  Age: 74 Year
  Sex: Male

DRUGS (10)
  1. AMIODARONE HCL [Suspect]
  2. BUMETANIDE [Concomitant]
  3. LEUPROLIDE ACETATE [Concomitant]
  4. LOSARTAN POTASSIUM [Concomitant]
  5. SPIRONOLACTONE [Concomitant]
  6. TAMSULOSIN HCL (TAMSULOSIN HYDROCHLORIDE) [Concomitant]
  7. WARFARIN SODIUM [Concomitant]
  8. MULTIVITAMIN [Concomitant]
  9. IRON (IRON) [Concomitant]
  10. CYANOCOBALAMIN [Concomitant]

REACTIONS (3)
  - BONE MARROW FAILURE [None]
  - GRANULOMA [None]
  - PANCYTOPENIA [None]
